FAERS Safety Report 8416760-9 (Version None)
Quarter: 2012Q2

REPORT INFORMATION
  Report Type: 
  Country: None (occurrence: None)
  Receive Date: 20120606
  Receipt Date: 20120529
  Transmission Date: 20120825
  Serious: Yes (Life-Threatening, Hospitalization)
  Sender: FDA-Public Use
  Company Number: JP-MERCK-1203USA01520

PATIENT
  Age: 69 Year
  Sex: Female
  Weight: 41 kg

DRUGS (4)
  1. MUCOSTA [Concomitant]
     Indication: GASTRITIS
     Route: 048
  2. JANUVIA [Suspect]
     Indication: DIABETES MELLITUS
     Route: 048
     Dates: start: 20110217, end: 20110818
  3. MUCOSOLVAN [Concomitant]
     Indication: SPUTUM RETENTION
     Route: 048
  4. DASEN [Concomitant]
     Indication: NASOPHARYNGITIS
     Route: 048
     Dates: start: 20110217, end: 20110311

REACTIONS (3)
  - PRODUCTIVE COUGH [None]
  - COUGH [None]
  - INTERSTITIAL LUNG DISEASE [None]
